FAERS Safety Report 5812786-X (Version None)
Quarter: 2008Q3

REPORT INFORMATION
  Report Type: 
  Country: None (occurrence: None)
  Receive Date: 20080717
  Receipt Date: 20080404
  Transmission Date: 20090109
  Serious: No
  Sender: FDA-Public Use
  Company Number: US-BAYER-200819090NA

PATIENT
  Age: 28 Year
  Sex: Female
  Weight: 73 kg

DRUGS (1)
  1. MIRENA [Suspect]
     Indication: CONTRACEPTION
     Route: 015
     Dates: start: 20080312, end: 20080313

REACTIONS (4)
  - DISCOMFORT [None]
  - HYPERSENSITIVITY [None]
  - PRURITUS [None]
  - RASH [None]
